FAERS Safety Report 19477179 (Version 1)
Quarter: 2021Q2

REPORT INFORMATION
  Report Type: Spontaneous
  Country: US (occurrence: US)
  Receive Date: 20210629
  Receipt Date: 20210629
  Transmission Date: 20210717
  Serious: Yes (Other)
  Sender: FDA-Public Use
  Company Number: None

PATIENT
  Age: 24 Year
  Sex: Male
  Weight: 85.5 kg

DRUGS (10)
  1. I?THEANINE [Concomitant]
  2. FLUOXETINE [Concomitant]
     Active Substance: FLUOXETINE HYDROCHLORIDE
  3. HYDROXYZINE [Concomitant]
     Active Substance: HYDROXYZINE HYDROCHLORIDE
  4. CHAMOMILE [Concomitant]
     Active Substance: CHAMOMILE
  5. CBD   WITH THC [Concomitant]
  6. TRAZODONE [Suspect]
     Active Substance: TRAZODONE HYDROCHLORIDE
     Indication: INSOMNIA
     Route: 048
     Dates: start: 20210501, end: 20210625
  7. MULTIVITAMIN [Concomitant]
     Active Substance: VITAMINS
  8. GABA [Concomitant]
     Active Substance: HOMEOPATHICS
  9. MIRTAZAPINE. [Concomitant]
     Active Substance: MIRTAZAPINE
  10. ACETAMINOPHEN AND IBUPROFEN [Concomitant]

REACTIONS (3)
  - Oropharyngeal pain [None]
  - Hypersensitivity [None]
  - Rhinorrhoea [None]

NARRATIVE: CASE EVENT DATE: 20210501
